FAERS Safety Report 9425476 (Version 1)
Quarter: 2013Q3

REPORT INFORMATION
  Report Type: Spontaneous
  Country: IR (occurrence: IR)
  Receive Date: 20130729
  Receipt Date: 20130729
  Transmission Date: 20140515
  Serious: Yes (Hospitalization, Other)
  Sender: FDA-Public Use
  Company Number: IR-BAYER-2013-087633

PATIENT
  Age: 33 Year
  Sex: Female

DRUGS (6)
  1. PROGESTERONE (SOLUTION) [Suspect]
     Indication: INFERTILITY
     Dosage: 80 MG /DAY
  2. PROGESTERONE (SOLUTION) [Suspect]
     Indication: IN VITRO FERTILISATION
  3. CLOMID [Concomitant]
     Indication: IN VITRO FERTILISATION
     Dosage: 50 MG DAILY
  4. GONADOTROPIN [Concomitant]
     Indication: IN VITRO FERTILISATION
     Dosage: 50 IU, QD
     Route: 030
  5. CHORIONIC GONADOTROPIN [Concomitant]
     Indication: IN VITRO FERTILISATION
     Dosage: 7500 IU, UNK
  6. ACETYLSALICYLIC ACID({=100 MG) [Suspect]
     Indication: CEREBRAL INFARCTION
     Dosage: 80 MG /DAY

REACTIONS (2)
  - Cerebral infarction [Recovered/Resolved]
  - Grand mal convulsion [Recovered/Resolved]
